FAERS Safety Report 9843882 (Version 1)
Quarter: 2013Q4

REPORT INFORMATION
  Report Type: Spontaneous
  Country: US (occurrence: None)
  Receive Date: 20131223
  Receipt Date: 20131223
  Transmission Date: 20140711
  Serious: Yes (Other)
  Sender: FDA-Public Use
  Company Number: 1000048487

PATIENT
  Age: 62 Year
  Sex: Male

DRUGS (5)
  1. LINZESS (LINACLOTIDE) (CAPSULES) [Suspect]
     Indication: CONSTIPATION
     Route: 048
     Dates: start: 20130905
  2. SOLUMEDROL (METHYLPREDNISOLONE SODIUM SUCCINATE) [Suspect]
     Route: 048
     Dates: start: 20130904
  3. ABILIFY (ARIPIPRAZOLE) [Concomitant]
  4. NEXIUM (ESOMEPRAZOLE) [Concomitant]
  5. PRISTIQ (DESVENLAFAXINE SUCCINATE) [Concomitant]

REACTIONS (1)
  - Diarrhoea [None]
